FAERS Safety Report 8985715 (Version 1)
Quarter: 2012Q4

REPORT INFORMATION
  Report Type: 
  Country: US (occurrence: US)
  Receive Date: 20121226
  Receipt Date: 20121226
  Transmission Date: 20130627
  Serious: No
  Sender: FDA-Public Use
  Company Number: US-VERTEX PHARMACEUTICALS INC.-2012-026526

PATIENT
  Sex: Female
  Weight: 89 kg

DRUGS (3)
  1. VX-950 (TELAPREVIR) [Suspect]
     Indication: HEPATITIS C
     Dosage: 750 mg, tid
     Route: 048
     Dates: start: 2012
  2. PEGASYS [Suspect]
     Indication: HEPATITIS C
     Dosage: 180 ?g, qw
     Route: 058
     Dates: start: 2012
  3. RIBASPHERE [Suspect]
     Indication: HEPATITIS C
     Dosage: 400 mg AM, 600 mg PM, qd
     Route: 048
     Dates: start: 2012

REACTIONS (3)
  - Dyspnoea [Unknown]
  - Injection site erythema [Unknown]
  - Fatigue [Unknown]
